FAERS Safety Report 21525053 (Version 1)
Quarter: 2022Q4

REPORT INFORMATION
  Report Type: Spontaneous
  Country: NL (occurrence: NL)
  Receive Date: 20221030
  Receipt Date: 20221030
  Transmission Date: 20230112
  Serious: Yes (Other)
  Sender: FDA-Public Use
  Company Number: None

PATIENT
  Age: 44 Year
  Sex: Female

DRUGS (10)
  1. QUETIAPINE [Interacting]
     Active Substance: QUETIAPINE
     Indication: Product used for unknown indication
     Dosage: 200 MILLIGRAM DAILY; 200 MG, QD (1 TIME DAILY, 1 TABLET)
     Dates: start: 2011
  2. TRANYLCYPROMINE SULFATE [Suspect]
     Active Substance: TRANYLCYPROMINE SULFATE
     Indication: Depression
     Dosage: 60 MILLIGRAM DAILY; 60MG A DAY, TAKEN IN THE MORNING, 1 TIME DAILY, 3 TABLETS
     Dates: start: 20160721
  3. PANTOPRAZOLE SODIUM [Concomitant]
     Active Substance: PANTOPRAZOLE SODIUM
     Indication: Product used for unknown indication
     Dosage: 20 MILLIGRAM DAILY; 20 MG 1 TIME DAILY, 1 TABLET
  4. DESOGESTREL [Concomitant]
     Active Substance: DESOGESTREL
     Indication: Product used for unknown indication
     Dosage: 2 DOSAGE FORMS DAILY; 1 TIME DAILY, 2 TABLETS
  5. ALPRAZOLAM [Concomitant]
     Active Substance: ALPRAZOLAM
     Indication: Product used for unknown indication
     Dosage: 0.5 MG (AS REQUIRED)
  6. ZOPICLONE [Concomitant]
     Active Substance: ZOPICLONE
     Indication: Product used for unknown indication
     Dosage: 7.5 MILLIGRAM DAILY; 7.5 MG 1 TIME DAILY, 1 TABLET
  7. CHOLECALCIFEROL [Concomitant]
     Active Substance: CHOLECALCIFEROL
     Indication: Product used for unknown indication
     Dosage: 5600 IU, QW (1 TABLET WEEKLY)
  8. HALOPERIDOL [Concomitant]
     Active Substance: HALOPERIDOL
     Indication: Product used for unknown indication
     Dosage: 1 TIME DAILY 1 TABLET, 1 TIME DAILY 2 TABLETS
  9. LEVOTHYROXINE [Concomitant]
     Active Substance: LEVOTHYROXINE
     Indication: Product used for unknown indication
     Dosage: 3.5 DOSAGE FORMS DAILY; 3.5 DF, QD (1 TIME DAILY, 3.5 TABLETS)
  10. PHENPROCOUMON [Concomitant]
     Active Substance: PHENPROCOUMON
     Indication: Product used for unknown indication
     Dosage: 3 MG CCORDING TO SCHEME THROMBOSIS SERVICE

REACTIONS (3)
  - Hypertensive crisis [Recovered/Resolved]
  - Labelled drug-food interaction medication error [Unknown]
  - Contraindicated product administered [Not Recovered/Not Resolved]
